FAERS Safety Report 10775385 (Version 1)
Quarter: 2015Q1

REPORT INFORMATION
  Report Type: Spontaneous
  Country: US (occurrence: US)
  Receive Date: 20150209
  Receipt Date: 20150209
  Transmission Date: 20150721
  Serious: Yes (Other)
  Sender: FDA-Public Use
  Company Number: US-CELGENE-163-POMAL-14023846

PATIENT
  Age: 75 Year
  Sex: Male

DRUGS (9)
  1. PROPRANOLOL [Concomitant]
     Active Substance: PROPRANOLOL\PROPRANOLOL HYDROCHLORIDE
     Indication: PAIN
     Dosage: 40 MILLIGRAM
     Route: 048
  2. ACYCLOVIR. [Concomitant]
     Active Substance: ACYCLOVIR
     Indication: PAIN
     Route: 048
  3. SENNA-DOCUSATE [Concomitant]
     Indication: PAIN
     Route: 048
  4. PROCHLORPERAZINE. [Concomitant]
     Active Substance: PROCHLORPERAZINE
     Indication: PAIN
     Dosage: 1 GRAM
     Route: 048
  5. POMALYST [Suspect]
     Active Substance: POMALIDOMIDE
     Indication: PLASMA CELL MYELOMA
     Dosage: 4 MILLIGRAM
     Route: 048
     Dates: start: 201309, end: 201401
  6. QUININE SULFATE. [Concomitant]
     Active Substance: QUININE SULFATE
     Indication: PAIN
     Dosage: 20 MILLIGRAM
     Route: 048
  7. AMOXICILLIN. [Concomitant]
     Active Substance: AMOXICILLIN
     Indication: PAIN
     Dosage: 800 MILLIGRAM
     Route: 048
  8. CALCIUM+ VITAMIN D [Concomitant]
     Indication: PAIN
     Dosage: 1500 MILLIGRAM
     Route: 048
  9. OMEGA 3 FATTY ACID [Concomitant]
     Active Substance: OMEGA-3 FATTY ACIDS
     Indication: PAIN
     Dosage: 2 TABLET
     Route: 048

REACTIONS (6)
  - Malaise [Unknown]
  - Cognitive disorder [Unknown]
  - Plasma cell myeloma [Not Recovered/Not Resolved]
  - Fatigue [Unknown]
  - Pathological fracture [Recovering/Resolving]
  - Drug ineffective [Unknown]

NARRATIVE: CASE EVENT DATE: 201402
